FAERS Safety Report 19247811 (Version 8)
Quarter: 2021Q3

REPORT INFORMATION
  Report Type: Report from Study
  Country: US (occurrence: US)
  Receive Date: 20210512
  Receipt Date: 20210826
  Transmission Date: 20211014
  Serious: Yes (Hospitalization)
  Sender: FDA-Public Use
  Company Number: US-PFIZER INC-2021504540

PATIENT
  Age: 13 Year
  Sex: Male
  Weight: 25 kg

DRUGS (53)
  1. SIROLIMUS. [Suspect]
     Active Substance: SIROLIMUS
     Indication: IMMUNOSUPPRESSION
     Dosage: 0.92 MG, 3X/DAY
     Route: 050
     Dates: start: 20210309, end: 20210309
  2. SIROLIMUS. [Suspect]
     Active Substance: SIROLIMUS
     Dosage: 0.15 MG, SINGLE
     Route: 050
     Dates: start: 20210420, end: 20210420
  3. BACTRIM [Suspect]
     Active Substance: SULFAMETHOXAZOLE\TRIMETHOPRIM
     Dosage: 124 MG, 3X/WEEKLY
     Route: 050
     Dates: start: 20210326
  4. TACROLIMUS. [Suspect]
     Active Substance: TACROLIMUS
     Dosage: 0.8 MG, SINGLE
     Route: 050
     Dates: start: 20210325, end: 20210325
  5. TACROLIMUS. [Suspect]
     Active Substance: TACROLIMUS
     Dosage: 0.6 MG, 2X/DAY
     Route: 050
     Dates: start: 20210405, end: 20210407
  6. DEXAMETHASONE. [Suspect]
     Active Substance: DEXAMETHASONE
     Dosage: 2 MG, 1X/DAY
     Route: 050
     Dates: start: 20210522
  7. UBIDECARENONE. [Concomitant]
     Active Substance: UBIDECARENONE
     Dosage: UNK
     Dates: start: 2014
  8. MUPIROCIN. [Concomitant]
     Active Substance: MUPIROCIN
     Dosage: UNK
     Dates: start: 20200710
  9. SIROLIMUS. [Suspect]
     Active Substance: SIROLIMUS
     Dosage: 0.12 MG, 2X/DAY
     Route: 050
     Dates: start: 20210421, end: 20210426
  10. PREDNISOLONE. [Suspect]
     Active Substance: PREDNISOLONE
     Dosage: 8.7 MG, 1X/DAY, PREDNISOLONE SODIUM PHOSPHATE
     Route: 050
     Dates: start: 20210326, end: 20210408
  11. DIPHENHYDRAMINE. [Concomitant]
     Active Substance: DIPHENHYDRAMINE
     Dosage: UNK
     Dates: start: 20090214
  12. FAMOTIDINE. [Concomitant]
     Active Substance: FAMOTIDINE
     Dosage: UNK
     Dates: start: 202009
  13. OMEPRAZOLE. [Concomitant]
     Active Substance: OMEPRAZOLE
     Dosage: UNK
     Dates: start: 2018
  14. POTASSIUM CHLORIDE. [Concomitant]
     Active Substance: POTASSIUM CHLORIDE
     Dosage: UNK
     Dates: start: 2012
  15. MENAQUINONE?7 [Concomitant]
     Dosage: UNK
     Dates: start: 2012
  16. TACROLIMUS. [Suspect]
     Active Substance: TACROLIMUS
     Dosage: 1 MG, SINGLE
     Route: 050
     Dates: start: 20210325, end: 20210325
  17. DEXAMETHASONE. [Suspect]
     Active Substance: DEXAMETHASONE
     Indication: ORAL CANDIDIASIS
     Dosage: 1 SWAB APPLICATION, 4X/DAY
     Route: 048
     Dates: start: 20210420, end: 20210505
  18. IBUPROFEN. [Concomitant]
     Active Substance: IBUPROFEN
     Dosage: UNK
     Dates: start: 201208
  19. TACROLIMUS. [Suspect]
     Active Substance: TACROLIMUS
     Dosage: 1.25 MG, SINGLE
     Route: 050
     Dates: start: 20210315, end: 20210315
  20. TACROLIMUS. [Suspect]
     Active Substance: TACROLIMUS
     Dosage: 1 MG, 2X/DAY
     Route: 050
     Dates: start: 20210316, end: 20210324
  21. TACROLIMUS. [Suspect]
     Active Substance: TACROLIMUS
     Dosage: 0.6 MG, SINGLE
     Route: 050
     Dates: start: 20210408, end: 20210408
  22. TACROLIMUS. [Suspect]
     Active Substance: TACROLIMUS
     Dosage: 0.7 MG, 2X/DAY
     Route: 050
     Dates: start: 20210409, end: 20210419
  23. SIROLIMUS. [Suspect]
     Active Substance: SIROLIMUS
     Dosage: 0.1 MG, 2X/DAY
     Route: 050
     Dates: start: 20210313, end: 20210319
  24. SIROLIMUS. [Suspect]
     Active Substance: SIROLIMUS
     Dosage: 0.1 MG, 2X/DAY
     Route: 050
     Dates: start: 20210428
  25. TACROLIMUS. [Suspect]
     Active Substance: TACROLIMUS
     Indication: IMMUNOSUPPRESSION
     Dosage: 1.25 MG, 2X/DAY
     Route: 050
     Dates: start: 20210312, end: 20210314
  26. TACROLIMUS. [Suspect]
     Active Substance: TACROLIMUS
     Dosage: 1 MG, SINGLE
     Route: 050
     Dates: start: 20210315, end: 20210315
  27. TACROLIMUS. [Suspect]
     Active Substance: TACROLIMUS
     Dosage: 0.55 MG, 2X/DAY
     Route: 050
     Dates: start: 20210421
  28. DEXAMETHASONE. [Suspect]
     Active Substance: DEXAMETHASONE
     Indication: ANAESTHESIA
     Dosage: 8 MG, SINGLE
     Route: 042
     Dates: start: 20210428, end: 20210428
  29. HEPARIN [Concomitant]
     Active Substance: HEPARIN SODIUM
     Dosage: UNK
     Dates: start: 2011
  30. SIROLIMUS. [Suspect]
     Active Substance: SIROLIMUS
     Dosage: 0.12 MG, SINGLE
     Route: 050
     Dates: start: 20210420, end: 20210420
  31. TACROLIMUS. [Suspect]
     Active Substance: TACROLIMUS
     Dosage: 0.8 MG, 2X/DAY
     Route: 050
     Dates: start: 20210326, end: 20210404
  32. PREDNISOLONE. [Suspect]
     Active Substance: PREDNISOLONE
     Dosage: 4.8 MG, 1X/DAY, PREDNISOLONE SODIUM PHOSPHATE
     Route: 050
     Dates: start: 20210409, end: 20210517
  33. GABAPENTIN. [Concomitant]
     Active Substance: GABAPENTIN
     Dosage: UNK
     Dates: start: 2014
  34. MONTELUKAST SODIUM. [Concomitant]
     Active Substance: MONTELUKAST SODIUM
     Dosage: UNK
     Dates: start: 2017
  35. IMMUNOGLOBULIN HUMAN NORMAL [Concomitant]
     Active Substance: HUMAN IMMUNOGLOBULIN G
     Dosage: UNK
     Dates: start: 201208
  36. LACTOBACILLUS ACIDOPHILUS [Concomitant]
     Active Substance: LACTOBACILLUS ACIDOPHILUS
     Dosage: UNK
     Dates: start: 20091119
  37. SIROLIMUS. [Suspect]
     Active Substance: SIROLIMUS
     Dosage: 0.2 MG, 2X/DAY
     Route: 050
     Dates: start: 20210310, end: 20210312
  38. SIROLIMUS. [Suspect]
     Active Substance: SIROLIMUS
     Dosage: 0.15 MG, 2X/DAY
     Route: 050
     Dates: start: 20210320, end: 20210419
  39. SIROLIMUS. [Suspect]
     Active Substance: SIROLIMUS
     Dosage: 0.1 MG, SINGLE
     Route: 050
     Dates: start: 20210427, end: 20210427
  40. TACROLIMUS. [Suspect]
     Active Substance: TACROLIMUS
     Dosage: 0.7 MG, SINGLE
     Route: 050
     Dates: start: 20210420, end: 20210420
  41. TACROLIMUS. [Suspect]
     Active Substance: TACROLIMUS
     Dosage: 0.55 MG, SINGLE
     Route: 050
     Dates: start: 20210420, end: 20210420
  42. PREDNISOLONE. [Suspect]
     Active Substance: PREDNISOLONE
     Indication: IMMUNOSUPPRESSION
     Dosage: 12.3 MG, 1X/DAY, PREDNISOLONE SODIUM PHOSPHATE
     Route: 050
     Dates: start: 20210312, end: 20210325
  43. PREDNISOLONE. [Suspect]
     Active Substance: PREDNISOLONE
     Dosage: 13.5 MG, 1X/DAY, PREDNISOLONE SODIUM PHOSPHATE
     Route: 050
     Dates: start: 20210518, end: 20210521
  44. RIBOFLAVIN [Concomitant]
     Active Substance: RIBOFLAVIN
     Dosage: UNK
     Dates: start: 2014
  45. SODIUM CHLORIDE. [Concomitant]
     Active Substance: SODIUM CHLORIDE
     Dosage: UNK
     Dates: start: 201208
  46. SIROLIMUS. [Suspect]
     Active Substance: SIROLIMUS
     Dosage: 0.12 MG, SINGLE
     Route: 050
     Dates: start: 20210427, end: 20210427
  47. BACTRIM [Suspect]
     Active Substance: SULFAMETHOXAZOLE\TRIMETHOPRIM
     Indication: PNEUMOCYSTIS JIROVECII PNEUMONIA
     Dosage: 123.2 MG, 3X/WEEKLY
     Route: 050
     Dates: start: 20210309, end: 20210325
  48. TACROLIMUS. [Suspect]
     Active Substance: TACROLIMUS
     Dosage: 0.7 MG, SINGLE
     Route: 050
     Dates: start: 20210408, end: 20210408
  49. DEXAMETHASONE. [Suspect]
     Active Substance: DEXAMETHASONE
     Dosage: 18 MG, SINGLE
     Route: 042
     Dates: start: 20210512, end: 20210512
  50. ACETAMINOPHEN. [Concomitant]
     Active Substance: ACETAMINOPHEN
     Dosage: UNK
     Dates: start: 2011
  51. COLECALCIFEROL [Concomitant]
     Active Substance: CHOLECALCIFEROL
     Dosage: UNK
     Dates: start: 2012
  52. EMLA [Concomitant]
     Active Substance: LIDOCAINE\PRILOCAINE
     Dosage: UNK
     Dates: start: 200902
  53. IDURSULFASE [Concomitant]
     Active Substance: IDURSULFASE
     Dosage: UNK
     Dates: start: 2011

REACTIONS (11)
  - Periorbital oedema [Recovered/Resolved]
  - Condition aggravated [Recovered/Resolved]
  - Somnolence [Recovered/Resolved]
  - Stomatitis [Recovered/Resolved]
  - Oral candidiasis [Recovered/Resolved]
  - VIIth nerve injury [Recovered/Resolved]
  - Abdominal pain [Recovered/Resolved]
  - Condition aggravated [Recovered/Resolved]
  - VIIth nerve injury [Recovered/Resolved]
  - Myoclonus [Recovered/Resolved]
  - Dysphagia [Recovered/Resolved]

NARRATIVE: CASE EVENT DATE: 20210406
